FAERS Safety Report 24696766 (Version 1)
Quarter: 2024Q4

REPORT INFORMATION
  Report Type: Report from Study
  Country: CL (occurrence: CL)
  Receive Date: 20241204
  Receipt Date: 20241204
  Transmission Date: 20250114
  Serious: Yes (Hospitalization, Other)
  Sender: SANDOZ
  Company Number: CL-SANDOZ-SDZ2024CL099935

PATIENT
  Age: 8 Year
  Sex: Female
  Weight: 36 kg

DRUGS (1)
  1. OMNITROPE [Suspect]
     Active Substance: SOMATROPIN
     Indication: Product used for unknown indication
     Dosage: 0.5 MG, QD
     Route: 058
     Dates: start: 20220525

REACTIONS (1)
  - Epilepsy [Unknown]

NARRATIVE: CASE EVENT DATE: 20241120
